FAERS Safety Report 5318163-2 (Version None)
Quarter: 2007Q2

REPORT INFORMATION
  Report Type: 
  Country: None (occurrence: None)
  Receive Date: 20070507
  Receipt Date: 20070424
  Transmission Date: 20071010
  Serious: Yes (Hospitalization)
  Sender: FDA-Public Use
  Company Number: JP-ELI_LILLY_AND_COMPANY-JP200704006068

PATIENT
  Age: 78 Year
  Sex: Male
  Weight: 52 kg

DRUGS (3)
  1. GEMCITABINE HCL [Suspect]
     Indication: BILE DUCT CANCER RECURRENT
     Dosage: 1500 MG, OTHER
     Route: 042
     Dates: start: 20061129, end: 20061227
  2. KYTRIL [Concomitant]
     Indication: PROPHYLAXIS
     Dosage: 3 MG, UNKNOWN
     Route: 042
     Dates: start: 20061129, end: 20061227
  3. SWORD [Concomitant]
     Indication: CHOLANGITIS
     Dosage: 400 MG, DAILY (1/D)
     Route: 048
     Dates: start: 20061213, end: 20061229

REACTIONS (3)
  - ANASTOMOTIC ULCER [None]
  - BILE DUCT CANCER [None]
  - MALIGNANT NEOPLASM PROGRESSION [None]
